FAERS Safety Report 8050709-6 (Version None)
Quarter: 2012Q1

REPORT INFORMATION
  Report Type: 
  Country: None (occurrence: None)
  Receive Date: 20120117
  Receipt Date: 20120117
  Transmission Date: 20120608
  Serious: Yes (Other)
  Sender: FDA-Public Use
  Company Number: None

PATIENT
  Age: 66 Year
  Sex: Female
  Weight: 63.502 kg

DRUGS (2)
  1. LEVOTHYROXINE SODIUM [Concomitant]
     Route: 048
     Dates: start: 20111122, end: 20111122
  2. LEVOTHYROXINE SODIUM [Suspect]
     Indication: HYPOTHYROIDISM
     Route: 048
     Dates: start: 20110915, end: 20111118

REACTIONS (12)
  - IRRITABILITY [None]
  - DYSKINESIA [None]
  - PRURITUS GENERALISED [None]
  - MUSCLE DISORDER [None]
  - PRODUCT SUBSTITUTION ISSUE [None]
  - MOOD ALTERED [None]
  - THYROID FUNCTION TEST ABNORMAL [None]
  - ANXIETY [None]
  - INSOMNIA [None]
  - NEURALGIA [None]
  - WEIGHT DECREASED [None]
  - MUSCLE TWITCHING [None]
